FAERS Safety Report 6507352-7 (Version None)
Quarter: 2009Q4

REPORT INFORMATION
  Report Type: 
  Country: None (occurrence: None)
  Receive Date: 20091221
  Receipt Date: 20091209
  Transmission Date: 20100525
  Serious: Yes (Hospitalization)
  Sender: FDA-Public Use
  Company Number: GB-PFIZER INC-2009308193

PATIENT
  Age: 31 Year

DRUGS (1)
  1. SUNITINIB MALATE [Suspect]
     Indication: RENAL CELL CARCINOMA
     Dosage: 50 MG, 1X/DAY, 4 WEEKS ON 2 WEEKS OFF
     Route: 048
     Dates: start: 20060220

REACTIONS (1)
  - PELVIC PAIN [None]
